FAERS Safety Report 4723816-0 (Version None)
Quarter: 2005Q3

REPORT INFORMATION
  Report Type: 
  Country: None (occurrence: None)
  Receive Date: 20050722
  Receipt Date: 20050711
  Transmission Date: 20060218
  Serious: Yes (Hospitalization, Other)
  Sender: FDA-Public Use
  Company Number: 2005077932

PATIENT
  Age: 75 Year
  Sex: Female
  Weight: 68.0396 kg

DRUGS (6)
  1. BEXTRA [Suspect]
     Indication: OSTEOARTHRITIS
     Dosage: 20 MG (20 MG, 1 IN 1 D), ORAL
     Route: 048
     Dates: start: 20041201, end: 20050121
  2. BEXTRA [Suspect]
     Indication: PAIN
     Dosage: 20 MG (20 MG, 1 IN 1 D), ORAL
     Route: 048
     Dates: start: 20041201, end: 20050121
  3. LIPITOR [Concomitant]
  4. NEURONTIN [Concomitant]
  5. MIACALCIN [Concomitant]
  6. VICODIN [Concomitant]

REACTIONS (7)
  - DIARRHOEA HAEMORRHAGIC [None]
  - GASTRIC ULCER [None]
  - HAEMORRHAGE [None]
  - NAUSEA [None]
  - UPPER GASTROINTESTINAL HAEMORRHAGE [None]
  - VOMITING [None]
  - WHOLE BLOOD TRANSFUSION [None]
